FAERS Safety Report 8018321-2 (Version None)
Quarter: 2012Q1

REPORT INFORMATION
  Report Type: 
  Country: None (occurrence: None)
  Receive Date: 20120103
  Receipt Date: 20111228
  Transmission Date: 20120608
  Serious: Yes (Hospitalization)
  Sender: FDA-Public Use
  Company Number: NL-B.I. PHARMACEUTICALS,INC./RIDGEFIELD-2011-NL-00401NL

PATIENT
  Sex: Female
  Weight: 70 kg

DRUGS (6)
  1. BISOPROLOL FUMARATE [Concomitant]
     Dosage: 10 NR
  2. ISOPTIN [Concomitant]
     Dosage: 240 NR
  3. PRADAXA [Suspect]
     Indication: ATRIAL FIBRILLATION
     Dosage: 220 MG
     Dates: start: 20090101
  4. DIOVAN [Concomitant]
     Dosage: 80 NR
  5. CALCIUM CARBONATE [Concomitant]
  6. PRADAXA [Suspect]
     Dosage: 220 MG
     Dates: start: 20111115

REACTIONS (1)
  - CEREBRAL INFARCTION [None]
